FAERS Safety Report 7302307-7 (Version None)
Quarter: 2011Q1

REPORT INFORMATION
  Report Type: 
  Country: None (occurrence: None)
  Receive Date: 20110218
  Receipt Date: 20110210
  Transmission Date: 20110831
  Serious: Yes (Death, Hospitalization)
  Sender: FDA-Public Use
  Company Number: JP-AMGEN-KDC435275

PATIENT
  Age: 52 Year
  Sex: Male
  Weight: 61 kg

DRUGS (10)
  1. SANDOSTATIN [Concomitant]
     Route: 042
  2. PANITUMUMAB [Suspect]
     Dosage: 6 MG/KG, Q2WK
     Route: 041
     Dates: start: 20100913, end: 20101122
  3. ANTIHISTAMINES [Concomitant]
     Indication: PROPHYLAXIS
     Route: 065
  4. PANITUMUMAB [Suspect]
     Indication: COLORECTAL CANCER
     Dosage: 6 MG/KG, Q2WK
     Route: 041
     Dates: start: 20100802, end: 20100802
  5. CAMPTOSAR [Concomitant]
     Indication: COLORECTAL CANCER
     Route: 041
     Dates: start: 20100927
  6. FENTOS TAPE [Concomitant]
     Route: 062
  7. FLUOROURACIL [Concomitant]
     Indication: COLORECTAL CANCER
     Route: 040
     Dates: start: 20100927
  8. FLUOROURACIL [Concomitant]
     Route: 041
     Dates: start: 20100927
  9. LEUCOVORIN CALCIUM [Suspect]
     Indication: COLORECTAL CANCER
     Route: 041
     Dates: start: 20100927
  10. CORTICOSTEROIDS [Concomitant]
     Indication: PROPHYLAXIS
     Route: 065

REACTIONS (7)
  - VOMITING [None]
  - RENAL FAILURE ACUTE [None]
  - DERMATITIS ACNEIFORM [None]
  - DIARRHOEA [None]
  - COLORECTAL CANCER [None]
  - NEUTROPHIL COUNT DECREASED [None]
  - DUODENAL OBSTRUCTION [None]
